FAERS Safety Report 9583369 (Version 1)
Quarter: 2013Q4

REPORT INFORMATION
  Report Type: Spontaneous
  Country: US (occurrence: US)
  Receive Date: 20131002
  Receipt Date: 20131002
  Transmission Date: 20140711
  Serious: No
  Sender: FDA-Public Use
  Company Number: US-AMGEN-USASP2013046624

PATIENT
  Age: 61 Year
  Sex: Male

DRUGS (6)
  1. ENBREL [Suspect]
     Indication: PRODUCT USED FOR UNKNOWN INDICATION
     Dosage: 50 MG, QWK
     Route: 058
  2. BENICAR [Concomitant]
     Dosage: 5 MG, UNK
  3. HYDROCHLOROTHIAZIDE [Concomitant]
     Dosage: 12.5 MG, UNK
  4. FINASTERIDE [Concomitant]
     Dosage: 1 MG, UNK
  5. FENOFIBRATE [Concomitant]
     Dosage: 43 MG, UNK
  6. ACETAMINOPHEN [Concomitant]
     Dosage: 325 MG, UNK

REACTIONS (3)
  - Influenza [Unknown]
  - Injection site erythema [Recovered/Resolved]
  - Injection site pruritus [Recovered/Resolved]
